FAERS Safety Report 7418299-6 (Version None)
Quarter: 2011Q2

REPORT INFORMATION
  Report Type: 
  Country: None (occurrence: None)
  Receive Date: 20110415
  Receipt Date: 20110405
  Transmission Date: 20111010
  Serious: Yes (Life-Threatening, Hospitalization)
  Sender: FDA-Public Use
  Company Number: FR-MPIJNJ-2010-06356

PATIENT

DRUGS (16)
  1. EUPANTOL                           /01263201/ [Concomitant]
  2. VELCADE [Suspect]
     Indication: MULTIPLE MYELOMA
     Dosage: UNK
     Route: 042
     Dates: start: 20101021, end: 20101025
  3. REVLIMID [Suspect]
     Indication: MULTIPLE MYELOMA
     Dosage: 25 MG, UNK
     Route: 048
     Dates: start: 20101021, end: 20101025
  4. DUPHALAC [Concomitant]
  5. BACTRIM [Concomitant]
     Dosage: UNK
     Dates: end: 20101025
  6. LOVENOX [Concomitant]
  7. ACTISKENAN [Concomitant]
     Dosage: UNK
     Dates: end: 20101025
  8. OXYCONTIN [Concomitant]
     Dosage: 5 MG, UNK
     Dates: end: 20101025
  9. RASILEZ                            /01763601/ [Concomitant]
  10. DEXAMETHASONE [Suspect]
     Indication: MULTIPLE MYELOMA
     Dosage: UNK
     Route: 042
     Dates: start: 20101021, end: 20101025
  11. SKENAN [Concomitant]
     Dosage: UNK
     Dates: end: 20101025
  12. NEURONTIN [Concomitant]
  13. OXYCONTIN [Concomitant]
     Dosage: 20 MG, UNK
     Dates: end: 20101025
  14. CACIT VITAMINE D3                  /00944201/ [Concomitant]
  15. ZELITREX                           /01269701/ [Concomitant]
  16. TEMAZEPAM [Concomitant]
     Dosage: UNK
     Dates: end: 20101025

REACTIONS (3)
  - CONFUSIONAL STATE [None]
  - HYPONATRAEMIA [None]
  - INAPPROPRIATE ANTIDIURETIC HORMONE SECRETION [None]
